FAERS Safety Report 8229076-0 (Version None)
Quarter: 2012Q1

REPORT INFORMATION
  Report Type: 
  Country: None (occurrence: None)
  Receive Date: 20120322
  Receipt Date: 20120306
  Transmission Date: 20120608
  Serious: Yes (Hospitalization)
  Sender: FDA-Public Use
  Company Number: BE-ROCHE-1003859

PATIENT
  Age: 44 Year
  Sex: Female
  Weight: 66 kg

DRUGS (6)
  1. VEMURAFENIB [Suspect]
     Dosage: LAST DOSE PRIOR TO SAE 26/JAN/2012. TEMPORARILY INTERRUPTED.
     Route: 048
     Dates: start: 20120120, end: 20120126
  2. XANAX [Concomitant]
     Dates: start: 20110101
  3. ACETAMINOPHEN W/ CODEINE [Concomitant]
     Dates: start: 20110101
  4. VEMURAFENIB [Suspect]
     Indication: METASTATIC MALIGNANT MELANOMA
     Dosage: LAST DOSE PRIOR TO SAE 27/DEC/2011. TEMPORARILY INTERRUPTED.
     Route: 048
     Dates: start: 20110909, end: 20111227
  5. ZOMETA [Concomitant]
     Dosage: 04 MONTHLY PER MG
     Dates: start: 20110909
  6. VEMURAFENIB [Suspect]
     Route: 048
     Dates: start: 20120131

REACTIONS (3)
  - UTERINE LEIOMYOMA [None]
  - EPILEPSY [None]
  - BENIGN OVARIAN TUMOUR [None]
